FAERS Safety Report 4377345-7 (Version None)
Quarter: 2004Q2

REPORT INFORMATION
  Report Type: 
  Country: None (occurrence: None)
  Receive Date: 20040609
  Receipt Date: 20040525
  Transmission Date: 20050107
  Serious: Yes (Death, Life-Threatening, Hospitalization, Disabling, Other)
  Sender: FDA-Public Use
  Company Number: ES-2004-025817

PATIENT
  Age: 64 Year
  Sex: Male
  Weight: 72 kg

DRUGS (19)
  1. CAMPATH [Suspect]
     Indication: ALLOGENIC BONE MARROW TRANSPLANTATION THERAPY
     Dosage: 20 MG, 1X/DAY, INTRAVENOUS
     Route: 042
     Dates: start: 20030205, end: 20030312
  2. CAMPATH [Suspect]
     Indication: ALLOGENIC BONE MARROW TRANSPLANTATION THERAPY
     Dosage: 20 MG, 1X/DAY, INTRAVENOUS
     Route: 042
     Dates: start: 20030930, end: 20031004
  3. SEGURIL [Concomitant]
  4. ZYLORIC ^GLAXO WELLCOME^ [Concomitant]
  5. ACFOL [Concomitant]
  6. PENTAMIDINE (PENTAMIDINE) [Concomitant]
  7. LORAZEPAM [Concomitant]
  8. ARANESP [Concomitant]
  9. NEUPOGEN [Concomitant]
  10. POLARAMINE [Concomitant]
  11. CASPOFUNGIN (CASPOFUNGIN) [Concomitant]
  12. BESITRAN (SERTRALINE HYDROCHLORIDE) [Concomitant]
  13. ITRACONAZOLE [Concomitant]
  14. URSOCHOL ^INPHARZAM^ (URSODEOXYCHOLIC ACID) [Concomitant]
  15. ALMAX (ALMAGATE) [Concomitant]
  16. VALTREX [Concomitant]
  17. MEROPENEM (MEROPENEM) [Concomitant]
  18. ACTOCORTINA (HYDROCORTISONE SODIUM PHOSPHATE) [Concomitant]
  19. TEICOPLANIN (TEICOPLANIN) [Concomitant]

REACTIONS (17)
  - ASCITES [None]
  - BILIRUBIN CONJUGATED INCREASED [None]
  - BLOOD ALKALINE PHOSPHATASE INCREASED [None]
  - BLOOD BILIRUBIN INCREASED [None]
  - BLOOD LACTATE DEHYDROGENASE INCREASED [None]
  - CARDIOMEGALY [None]
  - COAGULOPATHY [None]
  - COOMBS DIRECT TEST POSITIVE [None]
  - GAMMA-GLUTAMYLTRANSFERASE INCREASED [None]
  - HAEMOGLOBIN DECREASED [None]
  - HEPATOMEGALY [None]
  - LUNG INFECTION [None]
  - LYMPHOMA [None]
  - METABOLIC ACIDOSIS [None]
  - PLATELET COUNT DECREASED [None]
  - PLEURAL EFFUSION [None]
  - RENAL FAILURE [None]
